FAERS Safety Report 13189927 (Version 1)
Quarter: 2017Q1

REPORT INFORMATION
  Report Type: Spontaneous
  Country: US (occurrence: US)
  Receive Date: 20170206
  Receipt Date: 20170206
  Transmission Date: 20170428
  Serious: No
  Sender: FDA-Public Use
  Company Number: US-PFIZER INC-2017049820

PATIENT
  Age: 66 Year
  Sex: Male

DRUGS (2)
  1. GABAPENTIN. [Suspect]
     Active Substance: GABAPENTIN
     Indication: PAIN
     Dosage: 600 MG, 1X/DAY, (IN THE MORNING)
     Route: 048
  2. GABAPENTIN. [Suspect]
     Active Substance: GABAPENTIN
     Dosage: 400 MG, 3X/DAY (IN THE EVENING, WITH BREAKFAST AND LUNCH)
     Route: 048

REACTIONS (4)
  - Product use issue [Unknown]
  - Somnolence [Unknown]
  - Condition aggravated [Unknown]
  - Confusional state [Unknown]
